FAERS Safety Report 7716986-3 (Version None)
Quarter: 2011Q3

REPORT INFORMATION
  Report Type: 
  Country: None (occurrence: None)
  Receive Date: 20110829
  Receipt Date: 20110825
  Transmission Date: 20111222
  Serious: Yes (Life-Threatening)
  Sender: FDA-Public Use
  Company Number: US-B.I. PHARMACEUTICALS,INC./RIDGEFIELD-2011-BP-19224BP

PATIENT
  Sex: Female
  Weight: 62.6 kg

DRUGS (14)
  1. AMIODARONE HYDROCHLORIDE [Concomitant]
     Route: 048
     Dates: start: 20110525, end: 20110713
  2. CALCIUM CARBONATE AND VITAMIN D [Concomitant]
     Route: 048
  3. ASPIRIN [Concomitant]
     Dosage: 81 MG
     Route: 048
  4. SIMAVASTATIN [Concomitant]
     Dosage: 10 MG
     Route: 048
  5. FOLIC ADID [Concomitant]
     Dosage: 0.4 MG
     Route: 048
  6. LISINOPRIL [Concomitant]
     Dosage: 10 MG
     Route: 048
  7. LOVAZA [Concomitant]
     Route: 048
  8. ATENOLOL [Concomitant]
     Dosage: 50 MG
     Route: 048
  9. SLO-MAG [Concomitant]
     Dosage: 128 MG
     Route: 048
  10. GABAPENTIN [Concomitant]
     Dosage: 900 MG
     Route: 048
  11. NITROSTAT [Concomitant]
     Route: 060
  12. ATIVAN [Concomitant]
     Route: 048
  13. PRADAXA [Suspect]
     Indication: ATRIAL FIBRILLATION
     Dosage: 150 MG
     Route: 048
     Dates: start: 20110518, end: 20110713
  14. CENTRUM MULTIPLE VITAMINS WITH MINERALS [Concomitant]
     Route: 048

REACTIONS (5)
  - RECTAL HAEMORRHAGE [None]
  - FATIGUE [None]
  - HAEMATOCHEZIA [None]
  - DIZZINESS [None]
  - GASTROINTESTINAL HAEMORRHAGE [None]
